FAERS Safety Report 11436327 (Version 1)
Quarter: 2015Q3

REPORT INFORMATION
  Report Type: Spontaneous
  Country: US (occurrence: US)
  Receive Date: 20150821
  Receipt Date: 20150821
  Transmission Date: 20151125
  Serious: No
  Sender: FDA-Public Use
  Company Number: US-ELI_LILLY_AND_COMPANY-US201402005309

PATIENT
  Sex: Male

DRUGS (7)
  1. CIALIS [Suspect]
     Active Substance: TADALAFIL
     Indication: DIABETES MELLITUS
     Dosage: 5 MG, QD
     Route: 065
  2. CINNAMON                           /01647501/ [Suspect]
     Active Substance: CINNAMON
     Indication: DIABETES MELLITUS
     Dosage: 3 DF, QD
     Route: 065
  3. INSULIN [Concomitant]
     Active Substance: INSULIN NOS
     Indication: DIABETES MELLITUS
     Dosage: UNK UNK, UNKNOWN
     Route: 065
  4. VICTOZA [Suspect]
     Active Substance: LIRAGLUTIDE
     Indication: WEIGHT DECREASED
  5. CIALIS [Suspect]
     Active Substance: TADALAFIL
     Indication: WEIGHT DECREASED
  6. CINNAMON                           /01647501/ [Suspect]
     Active Substance: CINNAMON
     Indication: WEIGHT DECREASED
  7. VICTOZA [Suspect]
     Active Substance: LIRAGLUTIDE
     Indication: DIABETES MELLITUS
     Dosage: 0.6 MG, UNKNOWN
     Route: 065

REACTIONS (3)
  - Blood glucose decreased [Unknown]
  - Off label use [Unknown]
  - Weight decreased [Unknown]
